FAERS Safety Report 21986312 (Version 2)
Quarter: 2023Q1

REPORT INFORMATION
  Report Type: Spontaneous
  Country: AU (occurrence: AU)
  Receive Date: 20230213
  Receipt Date: 20230220
  Transmission Date: 20230418
  Serious: No
  Sender: FDA-Public Use
  Company Number: AU-BoehringerIngelheim-2023-BI-218348

PATIENT
  Age: 86 Year
  Sex: Male

DRUGS (2)
  1. LINAGLIPTIN\METFORMIN HYDROCHLORIDE [Suspect]
     Active Substance: LINAGLIPTIN\METFORMIN HYDROCHLORIDE
     Indication: Product used for unknown indication
     Dosage: 2.5/1000 MG FORM STRENGTH
  2. JARDIANCE [Suspect]
     Active Substance: EMPAGLIFLOZIN
     Indication: Product used for unknown indication

REACTIONS (2)
  - Cyst rupture [Unknown]
  - Oedema peripheral [Not Recovered/Not Resolved]
